FAERS Safety Report 6114454-6 (Version None)
Quarter: 2009Q1

REPORT INFORMATION
  Report Type: 
  Country: None (occurrence: None)
  Receive Date: 20090313
  Receipt Date: 20090303
  Transmission Date: 20090719
  Serious: Yes (Other)
  Sender: FDA-Public Use
  Company Number: PHHY2009NO06179

PATIENT
  Sex: Female

DRUGS (2)
  1. RITALIN [Suspect]
     Indication: ATTENTION DEFICIT/HYPERACTIVITY DISORDER
     Dosage: 30 MG DAILY
     Route: 048
     Dates: start: 20090106, end: 20090209
  2. TOPIMAX [Interacting]
     Indication: EPILEPSY
     Dosage: 100 MG DAILY
     Route: 048
     Dates: start: 20081101

REACTIONS (5)
  - ANXIETY [None]
  - DRUG INTERACTION [None]
  - HALLUCINATION [None]
  - NAUSEA [None]
  - VOMITING [None]
